FAERS Safety Report 22635439 (Version 1)
Quarter: 2023Q2

REPORT INFORMATION
  Report Type: Spontaneous
  Country: JP (occurrence: JP)
  Receive Date: 20230623
  Receipt Date: 20230623
  Transmission Date: 20230721
  Serious: Yes (Other)
  Sender: FDA-Public Use
  Company Number: JP-BAYER-2023A049023

PATIENT
  Age: 75 Year
  Sex: Male

DRUGS (13)
  1. KOVALTRY [Suspect]
     Active Substance: ANTIHEMOPHILIC FACTOR, HUMAN RECOMBINANT
     Dosage: 19 DAYS OF ACTUAL ADMINISTRATION, 2000 IU/DAY ON DEMAND
     Route: 042
     Dates: start: 20190313, end: 20220324
  2. KOVALTRY [Suspect]
     Active Substance: ANTIHEMOPHILIC FACTOR, HUMAN RECOMBINANT
     Dosage: 320 IU/H ON DEMAND
     Route: 042
     Dates: start: 20230202, end: 20230205
  3. KOVALTRY [Suspect]
     Active Substance: ANTIHEMOPHILIC FACTOR, HUMAN RECOMBINANT
     Dosage: 4000 IU/DAY ON DEMAND
     Route: 042
     Dates: start: 20230207, end: 20230209
  4. KOVALTRY [Suspect]
     Active Substance: ANTIHEMOPHILIC FACTOR, HUMAN RECOMBINANT
     Dosage: 2000 IU/DAY ON DEMAND
     Route: 042
     Dates: start: 20230208, end: 20230215
  5. KOVALTRY [Suspect]
     Active Substance: ANTIHEMOPHILIC FACTOR, HUMAN RECOMBINANT
     Dosage: 4000 IU/DAY ON DEMAND
     Route: 042
     Dates: start: 20230216, end: 20230220
  6. KOVALTRY [Suspect]
     Active Substance: ANTIHEMOPHILIC FACTOR, HUMAN RECOMBINANT
     Dosage: 2000 IU/DAY ON DEMAND
     Route: 042
     Dates: start: 20230221, end: 20230223
  7. KOVALTRY [Suspect]
     Active Substance: ANTIHEMOPHILIC FACTOR, HUMAN RECOMBINANT
     Dosage: 2000 IU/DAY ON DEMAND
     Route: 042
     Dates: start: 20230225, end: 20230225
  8. KOVALTRY [Suspect]
     Active Substance: ANTIHEMOPHILIC FACTOR, HUMAN RECOMBINANT
     Dosage: 2000 IU/DAY ON DEMAND
     Route: 042
     Dates: start: 20230227, end: 20230227
  9. KOVALTRY [Suspect]
     Active Substance: ANTIHEMOPHILIC FACTOR, HUMAN RECOMBINANT
     Dosage: 2000 IU/DAY ON DEMAND
     Route: 042
     Dates: start: 20230301, end: 20230301
  10. KOVALTRY [Suspect]
     Active Substance: ANTIHEMOPHILIC FACTOR, HUMAN RECOMBINANT
     Dosage: 2000 IU/DAY ON DEMAND
     Route: 042
     Dates: start: 20230303, end: 20230303
  11. KOVALTRY [Suspect]
     Active Substance: ANTIHEMOPHILIC FACTOR, HUMAN RECOMBINANT
     Dosage: UNK
     Route: 042
     Dates: start: 20230309, end: 20230313
  12. KOVALTRY [Suspect]
     Active Substance: ANTIHEMOPHILIC FACTOR, HUMAN RECOMBINANT
     Dosage: 19 DAYS OF ACTUAL ADMINISTRATION, 2000 IU/DAY ON DEMAND
     Route: 042
     Dates: start: 20230314, end: 20230314
  13. ADYNOVATE [Concomitant]
     Active Substance: ANTIHEMOPHILIC FACTOR, HUMAN RECOMBINANT
     Dosage: 4000 IU/DAY ON DEMAND
     Dates: start: 20230201, end: 20230202

REACTIONS (2)
  - Haemorrhage [None]
  - Anti factor VIII antibody positive [Not Recovered/Not Resolved]

NARRATIVE: CASE EVENT DATE: 20230201
